FAERS Safety Report 26073026 (Version 3)
Quarter: 2025Q4

REPORT INFORMATION
  Report Type: Spontaneous
  Country: KR (occurrence: KR)
  Receive Date: 20251121
  Receipt Date: 20251211
  Transmission Date: 20260117
  Serious: No
  Sender: ASTELLAS
  Company Number: KR-ASTELLAS-2025-AER-063731

PATIENT
  Sex: Male

DRUGS (3)
  1. MIRABEGRON [Suspect]
     Active Substance: MIRABEGRON
     Indication: Contracted bladder
     Route: 065
     Dates: start: 20250117, end: 20250226
  2. VESICARE [Suspect]
     Active Substance: SOLIFENACIN SUCCINATE
     Indication: Contracted bladder
     Route: 065
     Dates: start: 20250117, end: 20250226
  3. HARNAL [Suspect]
     Active Substance: TAMSULOSIN HYDROCHLORIDE
     Indication: Contracted bladder
     Route: 065
     Dates: start: 20250117, end: 20250226

REACTIONS (2)
  - Dry mouth [Recovered/Resolved]
  - Wrong technique in product usage process [Unknown]

NARRATIVE: CASE EVENT DATE: 20250117
